FAERS Safety Report 21558144 (Version 4)
Quarter: 2022Q4

REPORT INFORMATION
  Report Type: Report from Study
  Country: US (occurrence: US)
  Receive Date: 20221107
  Receipt Date: 20221201
  Transmission Date: 20230112
  Serious: No
  Sender: FDA-Public Use
  Company Number: US-002147023-NVSC2022US247923

PATIENT
  Age: 65 Year
  Sex: Male

DRUGS (1)
  1. LEQVIO [Suspect]
     Active Substance: INCLISIRAN SODIUM
     Indication: Product used for unknown indication
     Dosage: UNK
     Route: 058
     Dates: start: 20220930

REACTIONS (13)
  - Lung hyperinflation [Not Recovered/Not Resolved]
  - Dizziness [Recovered/Resolved]
  - Nausea [Recovered/Resolved]
  - Hot flush [Recovered/Resolved]
  - Decreased appetite [Recovered/Resolved]
  - Feeling hot [Recovered/Resolved]
  - Dyspnoea [Not Recovered/Not Resolved]
  - Bronchitis [Not Recovered/Not Resolved]
  - Gastric dilatation [Not Recovered/Not Resolved]
  - Appetite disorder [Not Recovered/Not Resolved]
  - Hot flush [Not Recovered/Not Resolved]
  - Nasopharyngitis [Not Recovered/Not Resolved]
  - Feeling of body temperature change [Not Recovered/Not Resolved]

NARRATIVE: CASE EVENT DATE: 20220930
